FAERS Safety Report 13992991 (Version 1)
Quarter: 2017Q3

REPORT INFORMATION
  Report Type: Spontaneous
  Country: FR (occurrence: FR)
  Receive Date: 20170920
  Receipt Date: 20170920
  Transmission Date: 20171128
  Serious: Yes (Other)
  Sender: FDA-Public Use
  Company Number: FR-PFIZER INC-2017398834

PATIENT
  Age: 74 Year
  Sex: Female

DRUGS (1)
  1. TRIFLUCAN [Suspect]
     Active Substance: FLUCONAZOLE
     Indication: ORAL FUNGAL INFECTION
     Dosage: 1 TEASPOON, 1X/DAY IN THE MORNING ON AN EMPTY STOMACH

REACTIONS (4)
  - Hand-foot-and-mouth disease [Unknown]
  - Burns third degree [Unknown]
  - Rash [Unknown]
  - Blister [Unknown]
